FAERS Safety Report 25213169 (Version 1)
Quarter: 2025Q2

REPORT INFORMATION
  Report Type: Spontaneous
  Country: ES (occurrence: ES)
  Receive Date: 20250418
  Receipt Date: 20250418
  Transmission Date: 20250717
  Serious: Yes (Other)
  Sender: PFIZER
  Company Number: None

PATIENT
  Age: 31 Year
  Sex: Male
  Weight: 120 kg

DRUGS (10)
  1. PRISTIQ EXTENDED-RELEASE [Suspect]
     Active Substance: DESVENLAFAXINE SUCCINATE
     Indication: Depression
     Dosage: UNK, 1X/DAY
     Route: 048
     Dates: start: 20250102, end: 20250320
  2. LEXATIN [ESCITALOPRAM OXALATE] [Concomitant]
     Indication: Generalised anxiety disorder
     Dosage: UNK, 1X/DAY
     Dates: start: 20240601
  3. LIDET [Concomitant]
     Indication: Myalgia
     Dosage: UNK, 3X/DAY, AS NEEDED
     Dates: start: 20241205
  4. DOXAZOSINA NEO CINFA [Concomitant]
     Dosage: UNK, 1X/DAY
     Dates: start: 20240601
  5. ALPRAZOLAM CINFA [Concomitant]
     Indication: Generalised anxiety disorder
     Dates: start: 2020
  6. LORAZEPAM [Concomitant]
     Active Substance: LORAZEPAM
     Indication: Generalised anxiety disorder
     Dates: start: 2020
  7. METAMIZOLE MAGNESIUM [Concomitant]
     Active Substance: METAMIZOLE MAGNESIUM
     Indication: Headache
     Dates: start: 2018
  8. ENALAPRIL MALEATE\HYDROCHLOROTHIAZIDE [Concomitant]
     Active Substance: ENALAPRIL MALEATE\HYDROCHLOROTHIAZIDE
     Indication: Hypertension
     Dosage: UNK, 1X/DAY
     Dates: start: 20240601, end: 20250320
  9. CYANOCOBALAMIN [Concomitant]
     Active Substance: CYANOCOBALAMIN
     Indication: Vitamin B12 deficiency
     Dates: start: 202403
  10. EBASTINA NORMON [Concomitant]
     Indication: Rhinitis allergic
     Dates: start: 2008

REACTIONS (1)
  - Arthritis [Not Recovered/Not Resolved]

NARRATIVE: CASE EVENT DATE: 20250117
